FAERS Safety Report 11707450 (Version 1)
Quarter: 2015Q4

REPORT INFORMATION
  Report Type: Report from Study
  Country: DE (occurrence: DE)
  Receive Date: 20151106
  Receipt Date: 20151106
  Transmission Date: 20160304
  Serious: Yes (Hospitalization)
  Sender: FDA-Public Use
  Company Number: DE-ABBVIE-15K-062-1493383-00

PATIENT
  Sex: Female
  Weight: 67 kg

DRUGS (2)
  1. TRIAM [Concomitant]
     Active Substance: TRIAMCINOLONE
     Indication: PRODUCT USED FOR UNKNOWN INDICATION
     Route: 013
  2. HUMIRA [Suspect]
     Active Substance: ADALIMUMAB
     Indication: RHEUMATOID ARTHRITIS
     Route: 058

REACTIONS (8)
  - Muscle disorder [Unknown]
  - Weight increased [Unknown]
  - Muscle tightness [Unknown]
  - Pain [Unknown]
  - Synovitis [Unknown]
  - Mental disorder [Unknown]
  - Blood creatine phosphokinase increased [Unknown]
  - Rheumatoid factor increased [Unknown]
